FAERS Safety Report 6318571-7 (Version None)
Quarter: 2009Q3

REPORT INFORMATION
  Report Type: 
  Country: None (occurrence: None)
  Receive Date: 20090821
  Receipt Date: 20090818
  Transmission Date: 20100115
  Serious: No
  Sender: FDA-Public Use
  Company Number: PHHO2009IT09390

PATIENT
  Sex: Male
  Weight: 85 kg

DRUGS (2)
  1. CERTICAN [Suspect]
     Indication: METASTATIC NEOPLASM
     Dosage: 10 MG
     Route: 048
     Dates: start: 20090511, end: 20090511
  2. CERTICAN [Suspect]
     Dosage: 10 MG
     Route: 048
     Dates: start: 20090610

REACTIONS (1)
  - CHOLESTASIS [None]
